FAERS Safety Report 7965790-X (Version None)
Quarter: 2011Q4

REPORT INFORMATION
  Report Type: 
  Country: None (occurrence: None)
  Receive Date: 20111208
  Receipt Date: 20111129
  Transmission Date: 20120403
  Serious: Yes (Hospitalization, Other)
  Sender: FDA-Public Use
  Company Number: US-ABBOTT-11P-163-0721325-00

PATIENT
  Age: 72 Year
  Sex: Female

DRUGS (13)
  1. SERTRALINE HYDROCHLORIDE [Concomitant]
     Indication: ANXIETY
  2. RANITIDINE [Concomitant]
     Indication: PRODUCT USED FOR UNKNOWN INDICATION
  3. LOVASTATIN [Concomitant]
     Indication: BLOOD CHOLESTEROL INCREASED
  4. METHOTREXATE [Concomitant]
     Indication: PRODUCT USED FOR UNKNOWN INDICATION
  5. HUMIRA [Suspect]
     Indication: PSORIATIC ARTHROPATHY
     Dates: start: 20110218, end: 20110601
  6. HUMIRA [Suspect]
  7. FOLIC ACID [Concomitant]
     Indication: VITAMIN SUPPLEMENTATION
  8. HUMIRA [Suspect]
     Indication: RHEUMATOID ARTHRITIS
     Dates: end: 20111117
  9. EVISTA [Concomitant]
     Indication: BONE DENSITY ABNORMAL
  10. ZOLOFT [Concomitant]
     Indication: DEPRESSION
     Dosage: GENERIC
  11. EVISTA [Concomitant]
     Indication: OSTEOPENIA
  12. ALPRAZOLAM [Concomitant]
     Indication: PRODUCT USED FOR UNKNOWN INDICATION
  13. VITAMIN TAB [Concomitant]
     Indication: PRODUCT USED FOR UNKNOWN INDICATION
     Dosage: DAILY

REACTIONS (10)
  - UMBILICAL HERNIA [None]
  - LOCAL SWELLING [None]
  - INJECTION SITE PAIN [None]
  - JOINT SWELLING [None]
  - DRUG EFFECT DECREASED [None]
  - CYANOSIS [None]
  - ARTHRALGIA [None]
  - INGUINAL HERNIA [None]
  - ABDOMINAL PAIN LOWER [None]
  - URINARY TRACT INFECTION [None]
